FAERS Safety Report 5956877-1 (Version None)
Quarter: 2008Q4

REPORT INFORMATION
  Report Type: 
  Country: None (occurrence: None)
  Receive Date: 20081118
  Receipt Date: 20081107
  Transmission Date: 20090506
  Serious: Yes (Other)
  Sender: FDA-Public Use
  Company Number: US-JNJFOC-20081102748

PATIENT
  Sex: Female

DRUGS (1)
  1. EXTRA STRENGTH TYLENOL [Suspect]
     Indication: INSOMNIA
     Dosage: 12 IN 12 HOURS
     Route: 048

REACTIONS (7)
  - ABDOMINAL PAIN UPPER [None]
  - BLINDNESS [None]
  - DIARRHOEA [None]
  - DRUG INEFFECTIVE [None]
  - INSOMNIA [None]
  - INTENTIONAL OVERDOSE [None]
  - PRODUCT QUALITY ISSUE [None]
